FAERS Safety Report 5245150-5 (Version None)
Quarter: 2007Q1

REPORT INFORMATION
  Report Type: 
  Country: None (occurrence: None)
  Receive Date: 20070223
  Receipt Date: 20070212
  Transmission Date: 20070707
  Serious: Yes (Other)
  Sender: FDA-Public Use
  Company Number: PHEH2007US01931

PATIENT
  Age: 29 Year
  Sex: Male

DRUGS (4)
  1. GLEEVEC [Suspect]
     Indication: CHRONIC MYELOID LEUKAEMIA
     Dosage: 400 MG, QD
     Route: 048
     Dates: start: 20050801
  2. SEROQUEL [Concomitant]
  3. TOPAMAX [Concomitant]
  4. FENTANYL [Concomitant]

REACTIONS (2)
  - ARTHRALGIA [None]
  - BONE INFARCTION [None]
